FAERS Safety Report 6202083-5 (Version None)
Quarter: 2009Q2

REPORT INFORMATION
  Report Type: 
  Country: None (occurrence: None)
  Receive Date: 20090526
  Receipt Date: 20090522
  Transmission Date: 20091009
  Serious: Yes (Disabling)
  Sender: FDA-Public Use
  Company Number: CH-BRISTOL-MYERS SQUIBB COMPANY-14630404

PATIENT
  Sex: Female

DRUGS (1)
  1. IXEMPRA KIT [Suspect]
     Indication: BREAST CANCER
     Dosage: INITIAL DOSE OF 10 MG INTRAVENOUS (IV) IXABEPILONE AS MONOTHERAPY
     Route: 042
     Dates: start: 20090515, end: 20090515

REACTIONS (1)
  - DEAFNESS BILATERAL [None]
